FAERS Safety Report 5951587-9 (Version None)
Quarter: 2008Q4

REPORT INFORMATION
  Report Type: 
  Country: None (occurrence: None)
  Receive Date: 20081113
  Receipt Date: 20081104
  Transmission Date: 20090506
  Serious: Yes (Other)
  Sender: FDA-Public Use
  Company Number: PHNU2008DE01827

PATIENT
  Sex: Female
  Weight: 88 kg

DRUGS (23)
  1. RASILEZ [Suspect]
     Indication: HYPERTENSION
     Dosage: 1 DF, QD
     Route: 048
     Dates: start: 20080214, end: 20080508
  2. RAMIPRIL [Concomitant]
     Indication: HYPERTENSION
     Dosage: 1 DF, QD
     Dates: start: 20070901, end: 20080312
  3. SANDIMMUNE [Concomitant]
     Indication: RENAL TRANSPLANT
     Dosage: 75 MG, BID
     Dates: start: 20061001
  4. MYFORTIC [Concomitant]
     Indication: RENAL TRANSPLANT
     Dosage: 180 MG, BID
     Dates: start: 20080201
  5. XIPAMIDE [Concomitant]
     Indication: RENAL TRANSPLANT
     Dosage: 10 MG, QD
     Dates: start: 20070601
  6. PROVAS ^SANOL^ [Concomitant]
     Indication: HYPERTENSION
     Dosage: 160 MG, BID
     Dates: start: 20070621
  7. BISOPROLOL FUMARATE [Concomitant]
     Indication: HYPERTENSION
     Dosage: 15 MG, QD
     Dates: start: 20060601
  8. PREDNISOLONE [Concomitant]
     Indication: RENAL TRANSPLANT
     Dosage: 4 MG, QD
     Dates: start: 20071201
  9. PLAVIX [Concomitant]
     Dosage: 75 MG, QD
     Dates: start: 20070201
  10. TOREM [Concomitant]
     Indication: HYPERTENSION
     Dosage: 10 MG, QD
     Dates: start: 20061001
  11. SANDIMMUNE [Concomitant]
     Dosage: 1 DF, BID
  12. METHYLPREDNISOLONE 16MG TAB [Concomitant]
     Dosage: 1 DF, QD
  13. L-THYROXIN  HENNING [Concomitant]
     Dosage: 1 DF, QD
  14. MAGNESIUM ^JENAPHARM^ [Concomitant]
     Dosage: 1 DF, QD
  15. NOVORAPID [Concomitant]
     Dosage: 14 DF, TID
  16. LANTUS [Concomitant]
     Dosage: 40 DF, QD
  17. EZETROL [Concomitant]
     Dosage: 1 DF, QD
  18. ZYLORIC [Concomitant]
     Dosage: 0.5 DF, QD
  19. PANTOZOL [Concomitant]
     Dosage: 1 DF, QD
  20. ARANESP [Concomitant]
     Dosage: 1 DF, BIW
     Route: 058
  21. KATADOLON [Concomitant]
     Dosage: 1 DF, BID
  22. KALINOR-RETARD P [Concomitant]
     Dosage: 1 DF, TID
  23. ACTOS [Concomitant]
     Dosage: 1 DF, QD

REACTIONS (3)
  - BLOOD CREATININE INCREASED [None]
  - BLOOD UREA INCREASED [None]
  - RENAL FAILURE CHRONIC [None]
